FAERS Safety Report 9348405 (Version 2)
Quarter: 2013Q3

REPORT INFORMATION
  Report Type: Spontaneous
  Country: IT (occurrence: IT)
  Receive Date: 20130614
  Receipt Date: 20130701
  Transmission Date: 20140515
  Serious: Yes (Hospitalization)
  Sender: FDA-Public Use
  Company Number: IT-BRISTOL-MYERS SQUIBB COMPANY-18987339

PATIENT
  Age: 86 Year
  Sex: Male

DRUGS (1)
  1. COUMADIN TABS 5 MG [Suspect]
     Indication: MYOCARDIAL ISCHAEMIA
     Dosage: 1DF: 1 UNIT
     Route: 048
     Dates: start: 20130101, end: 20130430

REACTIONS (6)
  - Overdose [Unknown]
  - International normalised ratio increased [Recovered/Resolved]
  - Haemorrhage [Unknown]
  - Fall [Unknown]
  - Iron deficiency anaemia [Recovered/Resolved]
  - Tremor [Unknown]
